FAERS Safety Report 23843744 (Version 1)
Quarter: 2024Q2

REPORT INFORMATION
  Report Type: Spontaneous
  Country: US (occurrence: None)
  Receive Date: 20240510
  Receipt Date: 20240510
  Transmission Date: 20240716
  Serious: No
  Sender: FDA-Public Use
  Company Number: None

PATIENT
  Age: 69 Year
  Sex: Female
  Weight: 76.5 kg

DRUGS (1)
  1. ZYRTEC [Suspect]
     Active Substance: CETIRIZINE HYDROCHLORIDE
     Indication: Seasonal allergy
     Dates: start: 20240301, end: 20240502

REACTIONS (5)
  - Therapy interrupted [None]
  - Insomnia [None]
  - Impaired quality of life [None]
  - Disease recurrence [None]
  - Seasonal allergy [None]

NARRATIVE: CASE EVENT DATE: 20240502
